FAERS Safety Report 18729369 (Version 6)
Quarter: 2022Q3

REPORT INFORMATION
  Report Type: Report from Study
  Country: CA (occurrence: CA)
  Receive Date: 20210112
  Receipt Date: 20220712
  Transmission Date: 20221027
  Serious: Yes (Hospitalization, Other)
  Sender: FDA-Public Use
  Company Number: CA-GLAXOSMITHKLINE-CA2021AMR001813

PATIENT

DRUGS (2)
  1. MEPOLIZUMAB [Suspect]
     Active Substance: MEPOLIZUMAB
     Indication: Asthma
     Dosage: 100 MG, Z (MONTHLY)
     Route: 042
     Dates: start: 20190725
  2. PREDNISONE [Suspect]
     Active Substance: PREDNISONE
     Indication: Product used for unknown indication
     Dosage: UNK

REACTIONS (16)
  - Lung disorder [Unknown]
  - Cardiac disorder [Unknown]
  - COVID-19 [Unknown]
  - Dehydration [Unknown]
  - Coronavirus test positive [Unknown]
  - Pneumonia [Unknown]
  - Acute coronary syndrome [Unknown]
  - Atrial fibrillation [Unknown]
  - Thrombosis [Unknown]
  - Infection [Unknown]
  - Acute myocardial infarction [Unknown]
  - Renal failure [Unknown]
  - Malaise [Unknown]
  - Coronary arterial stent insertion [Unknown]
  - Patient isolation [Unknown]
  - Dyspnoea [Unknown]

NARRATIVE: CASE EVENT DATE: 20190901
